FAERS Safety Report 9405061 (Version 1)
Quarter: 2013Q3

REPORT INFORMATION
  Report Type: Spontaneous
  Country: US (occurrence: US)
  Receive Date: 20130717
  Receipt Date: 20130717
  Transmission Date: 20140515
  Serious: No
  Sender: FDA-Public Use
  Company Number: US-BRISTOL-MYERS SQUIBB COMPANY-18875484

PATIENT
  Age: 29 Year
  Sex: Female
  Weight: 87.53 kg

DRUGS (8)
  1. YERVOY [Suspect]
     Indication: MALIGNANT MELANOMA
     Dates: start: 20130429
  2. EFFEXOR [Concomitant]
     Dates: start: 2012
  3. XANAX [Concomitant]
     Dates: start: 2012
  4. POTASSIUM [Concomitant]
     Dates: start: 2012
  5. HYDROCHLOROTHIAZIDE [Concomitant]
     Dates: start: 2012
  6. OXYCODONE [Concomitant]
     Dates: start: 2012
  7. GABAPENTIN [Concomitant]
     Dates: start: 2012
  8. IBUPROFEN [Concomitant]

REACTIONS (3)
  - Fatigue [Unknown]
  - Abdominal distension [Unknown]
  - Pollakiuria [Unknown]
